FAERS Safety Report 7145968-8 (Version None)
Quarter: 2010Q4

REPORT INFORMATION
  Report Type: 
  Country: None (occurrence: None)
  Receive Date: 20101208
  Receipt Date: 20101018
  Transmission Date: 20110411
  Serious: Yes (Hospitalization)
  Sender: FDA-Public Use
  Company Number: US-ABBOTT-10P-163-0679056-00

PATIENT
  Sex: Female

DRUGS (1)
  1. ERYTHROMYCIN STEARATE [Suspect]
     Indication: PHARYNGITIS STREPTOCOCCAL
     Dates: start: 20070101, end: 20070101

REACTIONS (1)
  - RASH [None]
